FAERS Safety Report 6518158-7 (Version None)
Quarter: 2009Q4

REPORT INFORMATION
  Report Type: 
  Country: None (occurrence: None)
  Receive Date: 20091223
  Receipt Date: 20091223
  Transmission Date: 20100525
  Serious: Yes (Other)
  Sender: FDA-Public Use
  Company Number: None

PATIENT
  Age: 6 Year
  Sex: Male
  Weight: 24.4942 kg

DRUGS (2)
  1. SEROQUEL XR [Suspect]
     Indication: BIPOLAR DISORDER
     Dosage: 1CAPSULE DAILY PO
     Route: 048
     Dates: start: 20081009, end: 20091222
  2. TENEX [Suspect]
     Indication: BIPOLAR DISORDER
     Dosage: 1CAPSULE DAILY PO
     Route: 048
     Dates: start: 20080907, end: 20091222

REACTIONS (4)
  - LOSS OF CONSCIOUSNESS [None]
  - MEMORY IMPAIRMENT [None]
  - OFF LABEL USE [None]
  - SKIN PAPILLOMA [None]
